FAERS Safety Report 9966938 (Version 1)
Quarter: 2014Q1

REPORT INFORMATION
  Report Type: Report from Study
  Country: US (occurrence: US)
  Receive Date: 20140305
  Receipt Date: 20140305
  Transmission Date: 20141002
  Serious: No
  Sender: FDA-Public Use
  Company Number: US-ABBVIE-13P-163-1123262-00

PATIENT
  Age: 60 Year
  Sex: Male
  Weight: 58.57 kg

DRUGS (13)
  1. HUMIRA [Suspect]
     Indication: RHEUMATOID ARTHRITIS
     Dosage: -DEC-2003
     Dates: start: 200312, end: 20130627
  2. HUMIRA [Suspect]
     Dates: start: 20130711
  3. PLAQUENIL [Concomitant]
     Indication: RHEUMATOID ARTHRITIS
  4. OXYCODONE [Concomitant]
     Indication: PAIN
  5. FISH OIL [Concomitant]
     Indication: PRODUCT USED FOR UNKNOWN INDICATION
  6. POTASSIUM [Concomitant]
     Indication: MUSCLE SPASMS
  7. MULTIVITAMIN [Concomitant]
     Indication: PRODUCT USED FOR UNKNOWN INDICATION
  8. VITAMIN D [Concomitant]
     Indication: PRODUCT USED FOR UNKNOWN INDICATION
  9. PREDNISONE [Concomitant]
     Indication: RHEUMATOID ARTHRITIS
  10. LOVASTATIN [Concomitant]
     Indication: BLOOD CHOLESTEROL
  11. AMLODIPINE [Concomitant]
     Indication: PRODUCT USED FOR UNKNOWN INDICATION
  12. HYDROCHLOROTH [Concomitant]
     Indication: PRODUCT USED FOR UNKNOWN INDICATION
  13. TRIAMCINOLONE [Concomitant]
     Indication: RASH

REACTIONS (2)
  - Rheumatic disorder [Recovered/Resolved]
  - Rheumatoid arthritis [Not Recovered/Not Resolved]
